FAERS Safety Report 4754531-5 (Version None)
Quarter: 2005Q3

REPORT INFORMATION
  Report Type: 
  Country: None (occurrence: None)
  Receive Date: 20050829
  Receipt Date: 20041012
  Transmission Date: 20060218
  Serious: No
  Sender: FDA-Public Use
  Company Number: 18986

PATIENT
  Age: 30 Year
  Sex: Female

DRUGS (2)
  1. ZOVIRAX [Suspect]
     Dosage: 1APP SIX TIMES PER DAY
     Route: 061
     Dates: start: 20041007, end: 20041011
  2. LEXAPRO [Concomitant]
     Dosage: 10MG PER DAY
     Route: 048
     Dates: start: 20020101

REACTIONS (1)
  - DRUG INEFFECTIVE [None]
